FAERS Safety Report 22105719 (Version 2)
Quarter: 2023Q2

REPORT INFORMATION
  Report Type: Report from Study
  Country: US (occurrence: US)
  Receive Date: 20230317
  Receipt Date: 20230407
  Transmission Date: 20230722
  Serious: Yes (Hospitalization, Other)
  Sender: FDA-Public Use
  Company Number: US-ABBVIE-4343047

PATIENT
  Sex: Male

DRUGS (4)
  1. IMBRUVICA [Suspect]
     Active Substance: IBRUTINIB
     Indication: Chronic lymphocytic leukaemia
     Dosage: LAST ADMIN DATE: 2020??FORM STRENGTH: 140 MG
     Route: 048
     Dates: start: 202008
  2. IMBRUVICA [Suspect]
     Active Substance: IBRUTINIB
     Indication: Chronic lymphocytic leukaemia
     Dosage: FORM STRENGTH: 140 MG??FIRST ADMIN DATE:2022
     Route: 048
  3. IMBRUVICA [Suspect]
     Active Substance: IBRUTINIB
     Indication: Chronic lymphocytic leukaemia
     Dosage: FIRST ADMIN DATE: 2020??FORM STRENGTH: 140 MG
     Route: 048
     Dates: end: 20220224
  4. IMBRUVICA [Suspect]
     Active Substance: IBRUTINIB
     Indication: Chronic lymphocytic leukaemia
     Dosage: FORM STRENGTH: 140 MG
     Route: 048
     Dates: start: 20200902, end: 20201201

REACTIONS (6)
  - Bladder catheterisation [Unknown]
  - Hospitalisation [Unknown]
  - COVID-19 [Unknown]
  - Bacterial abdominal infection [Unknown]
  - Gastrointestinal bacterial infection [Unknown]
  - Decreased appetite [Unknown]
